FAERS Safety Report 13447430 (Version 2)
Quarter: 2017Q2

REPORT INFORMATION
  Report Type: Spontaneous
  Country: US (occurrence: US)
  Receive Date: 20170417
  Receipt Date: 20170519
  Transmission Date: 20170830
  Serious: No
  Sender: FDA-Public Use
  Company Number: US-PFIZER INC-2017159835

PATIENT
  Age: 60 Year
  Sex: Male
  Weight: 94.79 kg

DRUGS (1)
  1. SUTENT [Suspect]
     Active Substance: SUNITINIB MALATE
     Indication: RENAL CANCER METASTATIC
     Dosage: 50 MG, CYCLIC (D 1-28 Q42DAYS)
     Route: 048
     Dates: start: 20170404, end: 20170515

REACTIONS (3)
  - Oropharyngeal pain [Recovered/Resolved]
  - Chromaturia [Unknown]
  - Nausea [Recovered/Resolved]
